FAERS Safety Report 6940722-1 (Version None)
Quarter: 2010Q3

REPORT INFORMATION
  Report Type: 
  Country: None (occurrence: None)
  Receive Date: 20100825
  Receipt Date: 20100816
  Transmission Date: 20110219
  Serious: Yes (Other)
  Sender: FDA-Public Use
  Company Number: US-ROCHE-721928

PATIENT
  Sex: Male

DRUGS (2)
  1. AVASTIN [Suspect]
     Route: 065
  2. ALIMTA [Concomitant]
     Dosage: DRUG REPORTED AS: ALMITA

REACTIONS (1)
  - RENAL FAILURE [None]
